FAERS Safety Report 7153276-4 (Version None)
Quarter: 2010Q4

REPORT INFORMATION
  Report Type: 
  Country: None (occurrence: None)
  Receive Date: 20101213
  Receipt Date: 20101202
  Transmission Date: 20110411
  Serious: Yes (Congenital Anomaly)
  Sender: FDA-Public Use
  Company Number: JP-ROCHE-739001

PATIENT
  Age: 65 Year
  Sex: Female

DRUGS (3)
  1. HERCEPTIN [Suspect]
     Indication: BREAST CANCER METASTATIC
     Route: 041
     Dates: start: 20080708, end: 20080708
  2. HERCEPTIN [Suspect]
     Route: 041
     Dates: start: 20080715
  3. NAVELBINE [Concomitant]
     Dosage: DOSAGE WAS UNCERTAIN.
     Route: 042

REACTIONS (1)
  - VISUAL FIELD DEFECT [None]
